FAERS Safety Report 9541795 (Version 1)
Quarter: 2013Q3

REPORT INFORMATION
  Report Type: Spontaneous
  Country: NL (occurrence: None)
  Receive Date: 20130918
  Receipt Date: 20130918
  Transmission Date: 20140515
  Serious: Yes (Other)
  Sender: FDA-Public Use
  Company Number: AUR-APL-2013-07640

PATIENT
  Age: 50 Year
  Sex: Female
  Weight: 80 kg

DRUGS (4)
  1. FLUOXETINE [Suspect]
     Indication: DEPRESSION
     Dates: start: 20070102
  2. TRAZOLAN [Suspect]
     Indication: SEDATION
     Dates: start: 20130820, end: 20130821
  3. PRAXITEN PLIVA (OXAZEPAM) (OXAZEPAM) [Suspect]
     Indication: ANXIETY
     Dates: start: 20070101
  4. BUSPIRONE [Suspect]
     Indication: ANXIETY
     Dates: start: 20040101

REACTIONS (5)
  - Drug interaction [None]
  - Apathy [None]
  - Depressed level of consciousness [None]
  - Tremor [None]
  - Hyperhidrosis [None]
